FAERS Safety Report 8221819-5 (Version None)
Quarter: 2012Q1

REPORT INFORMATION
  Report Type: 
  Country: None (occurrence: None)
  Receive Date: 20120307
  Receipt Date: 20101208
  Transmission Date: 20120608
  Serious: Yes (Life-Threatening)
  Sender: FDA-Public Use
  Company Number: PHHY2010US74461

PATIENT

DRUGS (1)
  1. AFINITOR [Suspect]
     Indication: METASTATIC RENAL CELL CARCINOMA
     Dosage: 10 MG, QD, ORAL
     Route: 048
     Dates: start: 20100601

REACTIONS (2)
  - PLEURAL EFFUSION [None]
  - ASPIRATION PLEURAL CAVITY [None]
